FAERS Safety Report 6736594-0 (Version None)
Quarter: 2010Q2

REPORT INFORMATION
  Report Type: 
  Country: None (occurrence: None)
  Receive Date: 20100521
  Receipt Date: 20100510
  Transmission Date: 20101027
  Serious: Yes (Hospitalization, Other)
  Sender: FDA-Public Use
  Company Number: US-ELI_LILLY_AND_COMPANY-US201005002757

PATIENT
  Age: 55 Year
  Sex: Male
  Weight: 95.465 kg

DRUGS (9)
  1. EFFIENT [Suspect]
     Indication: STENT PLACEMENT
     Dosage: 60 MG, OTHER
     Dates: start: 20100319
  2. EFFIENT [Suspect]
     Dosage: 10 MG, DAILY (1/D)
     Dates: start: 20100319
  3. LIPITOR [Concomitant]
     Indication: HYPERLIPIDAEMIA
     Dosage: 80 MG, UNKNOWN
  4. COREG [Concomitant]
     Dosage: 3.125 D/F, UNKNOWN
  5. NIASPAN [Concomitant]
     Indication: HYPERLIPIDAEMIA
     Dosage: 500 MG, UNKNOWN
  6. RAMIPRIL [Concomitant]
     Dosage: 2.5 MG, UNKNOWN
  7. ASPIRIN [Concomitant]
     Dosage: 325 MG, UNKNOWN
  8. NITROGLYCERIN [Concomitant]
  9. ISOSORBIDE [Concomitant]

REACTIONS (8)
  - ACUTE MYOCARDIAL INFARCTION [None]
  - ANGINA PECTORIS [None]
  - CARDIAC ARREST [None]
  - CORONARY ARTERY STENOSIS [None]
  - DIZZINESS [None]
  - EJECTION FRACTION DECREASED [None]
  - HYPERHIDROSIS [None]
  - PARAESTHESIA [None]
